FAERS Safety Report 24220662 (Version 1)
Quarter: 2024Q3

REPORT INFORMATION
  Report Type: Spontaneous
  Country: US (occurrence: US)
  Receive Date: 20240818
  Receipt Date: 20240818
  Transmission Date: 20241016
  Serious: Yes (Death, Life-Threatening, Hospitalization, Other)
  Sender: DR REDDYS
  Company Number: None

PATIENT
  Age: 69 Year
  Sex: Female

DRUGS (6)
  1. TACROLIMUS [Suspect]
     Active Substance: TACROLIMUS
     Indication: Immunosuppression
  2. MYCOPHENOLATE MOFETIL [Suspect]
     Active Substance: MYCOPHENOLATE MOFETIL
     Indication: Immunosuppression
     Route: 065
  3. CYCLOPHOSPHAMIDE [Suspect]
     Active Substance: CYCLOPHOSPHAMIDE
     Indication: Immunosuppression
     Route: 065
  4. NIVOLUMAB [Concomitant]
     Active Substance: NIVOLUMAB
     Indication: Neuroendocrine carcinoma of the skin
  5. IPILIMUMAB [Concomitant]
     Active Substance: IPILIMUMAB
     Indication: Neuroendocrine carcinoma of the skin
  6. IPILIMUMAB [Concomitant]
     Active Substance: IPILIMUMAB
     Route: 065

REACTIONS (4)
  - Neutropenia [Fatal]
  - Respiratory failure [Fatal]
  - Bacteraemia [Fatal]
  - Septic shock [Fatal]
